FAERS Safety Report 5377007-3 (Version None)
Quarter: 2007Q3

REPORT INFORMATION
  Report Type: 
  Country: None (occurrence: None)
  Receive Date: 20070703
  Receipt Date: 20070628
  Transmission Date: 20080115
  Serious: Yes (Death)
  Sender: FDA-Public Use
  Company Number: US-JNJFOC-20070700316

PATIENT
  Sex: Female

DRUGS (4)
  1. INVEGA [Suspect]
     Indication: DRUG USE FOR UNKNOWN INDICATION
  2. LITHIUM [Concomitant]
  3. SEROQUEL [Concomitant]
  4. TOPAMAX [Concomitant]

REACTIONS (2)
  - DEATH [None]
  - VOMITING [None]
